FAERS Safety Report 13656206 (Version 1)
Quarter: 2017Q2

REPORT INFORMATION
  Report Type: Report from Study
  Country: TW (occurrence: TW)
  Receive Date: 20170615
  Receipt Date: 20170615
  Transmission Date: 20170830
  Serious: Yes (Other)
  Sender: FDA-Public Use
  Company Number: TW-AMGEN-TWNSL2017087797

PATIENT
  Age: 66 Year
  Sex: Male

DRUGS (1)
  1. PROLIA [Suspect]
     Active Substance: DENOSUMAB
     Indication: PRODUCT USED FOR UNKNOWN INDICATION
     Dosage: 60 MG, Q6MO
     Route: 065

REACTIONS (7)
  - Cerebrovascular accident [Unknown]
  - Viral upper respiratory tract infection [Unknown]
  - Influenza [Unknown]
  - Sleep disorder due to a general medical condition [Unknown]
  - Productive cough [Unknown]
  - Arthropathy [Unknown]
  - Fracture [Unknown]

NARRATIVE: CASE EVENT DATE: 2017
